FAERS Safety Report 18926958 (Version 1)
Quarter: 2021Q1

REPORT INFORMATION
  Report Type: Spontaneous
  Country: BR (occurrence: BR)
  Receive Date: 20210223
  Receipt Date: 20210223
  Transmission Date: 20210420
  Serious: Yes (Hospitalization, Other)
  Sender: FDA-Public Use
  Company Number: BR-GLAXOSMITHKLINE-BR2019AMR211559

PATIENT
  Age: 42 Year
  Sex: Female
  Weight: 63 kg

DRUGS (1)
  1. BENLYSTA [Suspect]
     Active Substance: BELIMUMAB
     Indication: SYSTEMIC LUPUS ERYTHEMATOSUS
     Dosage: UNK
     Route: 042
     Dates: start: 20190327, end: 20201222

REACTIONS (18)
  - Therapeutic response unexpected [Unknown]
  - Inappropriate schedule of product administration [Unknown]
  - Diarrhoea [Recovered/Resolved]
  - Social problem [Unknown]
  - COVID-19 [Recovered/Resolved]
  - Peripheral swelling [Unknown]
  - Cough [Unknown]
  - Loss of personal independence in daily activities [Unknown]
  - Urine abnormality [Unknown]
  - Oropharyngeal pain [Recovered/Resolved]
  - Ill-defined disorder [Recovering/Resolving]
  - Muscle spasms [Unknown]
  - Renal failure [Not Recovered/Not Resolved]
  - Labyrinthitis [Unknown]
  - Musculoskeletal discomfort [Unknown]
  - Influenza [Unknown]
  - Bone pain [Not Recovered/Not Resolved]
  - Limb discomfort [Unknown]

NARRATIVE: CASE EVENT DATE: 202012
